FAERS Safety Report 13268181 (Version 1)
Quarter: 2017Q1

REPORT INFORMATION
  Report Type: Spontaneous
  Country: CH (occurrence: CH)
  Receive Date: 20170224
  Receipt Date: 20170224
  Transmission Date: 20170428
  Serious: Yes (Hospitalization)
  Sender: FDA-Public Use
  Company Number: CH-PFIZER INC-2017077205

PATIENT
  Age: 78 Year
  Sex: Male

DRUGS (9)
  1. TRIATEC [Suspect]
     Active Substance: RAMIPRIL
     Dosage: 10 MG, 2X/DAY
     Route: 048
  2. ASPIRIN CARDIO [Concomitant]
     Active Substance: ASPIRIN
     Dosage: UNK
     Dates: end: 201701
  3. NORVIR [Suspect]
     Active Substance: RITONAVIR
     Dosage: 100 MG, DAILY
     Route: 048
     Dates: start: 2010
  4. AMLODIPINE MEPHA [Concomitant]
     Dosage: UNK
  5. PREZISTA [Concomitant]
     Active Substance: DARUNAVIR ETHANOLATE
     Dosage: UNK
  6. CARVEDILOL SANDOZ [Concomitant]
     Active Substance: CARVEDILOL
     Dosage: UNK
  7. PANTOZOL [Concomitant]
     Active Substance: PANTOPRAZOLE SODIUM
     Dosage: UNK
  8. XARELTO [Concomitant]
     Active Substance: RIVAROXABAN
     Dosage: UNK
  9. TRUVADA [Concomitant]
     Active Substance: EMTRICITABINE\TENOFOVIR DISOPROXIL FUMARATE
     Dosage: UNK

REACTIONS (4)
  - Flushing [Unknown]
  - Dyspnoea [Unknown]
  - Loss of consciousness [Recovered/Resolved]
  - Syncope [Recovered/Resolved]

NARRATIVE: CASE EVENT DATE: 20161231
